FAERS Safety Report 8076000-X (Version None)
Quarter: 2012Q1

REPORT INFORMATION
  Report Type: 
  Country: None (occurrence: None)
  Receive Date: 20120127
  Receipt Date: 20110204
  Transmission Date: 20120608
  Serious: No
  Sender: FDA-Public Use
  Company Number: US-GLAXOSMITHKLINE-A0916582A

PATIENT
  Age: 72 Year
  Sex: Female

DRUGS (4)
  1. WELLBUTRIN XL [Suspect]
     Indication: DEPRESSION
     Dosage: 150MG PER DAY
     Route: 048
     Dates: start: 20101201
  2. ZANTAC [Concomitant]
  3. SYNTHROID [Concomitant]
  4. LITHIUM CARBONATE [Concomitant]

REACTIONS (1)
  - SOMNOLENCE [None]
